FAERS Safety Report 23387178 (Version 1)
Quarter: 2024Q1

REPORT INFORMATION
  Report Type: Spontaneous
  Country: US (occurrence: None)
  Receive Date: 20240109
  Receipt Date: 20240109
  Transmission Date: 20240409
  Serious: Yes (Other)
  Sender: FDA-Public Use
  Company Number: None

PATIENT
  Age: 27 Year
  Sex: Female
  Weight: 96.75 kg

DRUGS (10)
  1. MOLNUPIRAVIR [Suspect]
     Active Substance: MOLNUPIRAVIR
     Indication: COVID-19
     Dosage: OTHER QUANTITY : 40 CAPSULE(S);?
     Route: 048
     Dates: start: 20231027
  2. FLECAINIDE [Suspect]
     Active Substance: FLECAINIDE
  3. AIMOVIG [Concomitant]
     Active Substance: ERENUMAB-AOOE
  4. UBRELVY [Concomitant]
     Active Substance: UBROGEPANT
  5. NADOLOL [Concomitant]
     Active Substance: NADOLOL
  6. MIRENA [Concomitant]
     Active Substance: LEVONORGESTREL
  7. Northindrone [Concomitant]
  8. TIZANIDINE [Concomitant]
     Active Substance: TIZANIDINE
  9. NASALCROM [Concomitant]
     Active Substance: CROMOLYN SODIUM
  10. DOXYLAMINE [Concomitant]
     Active Substance: DOXYLAMINE

REACTIONS (2)
  - Palpitations [None]
  - Drug interaction [None]

NARRATIVE: CASE EVENT DATE: 20231102
